FAERS Safety Report 8088522-6 (Version None)
Quarter: 2012Q1

REPORT INFORMATION
  Report Type: 
  Country: None (occurrence: None)
  Receive Date: 20120128
  Receipt Date: 20110430
  Transmission Date: 20120608
  Serious: No
  Sender: FDA-Public Use
  Company Number: US-ABBOTT-11P-163-0722909-00

PATIENT
  Age: 36 Year
  Sex: Male

DRUGS (9)
  1. SEROQUEL [Concomitant]
     Indication: DEPRESSION
     Dosage: AT BEDTIME
  2. VENLAFAXINE HCL EXTENDED-RELEASE [Concomitant]
     Indication: DEPRESSION
     Dosage: 150 MG CAP 2 DAILY THEN 75 MG 2 PILLS EVERY AFTERNOON
  3. SHORT 6 MP [Concomitant]
     Indication: CROHN'S DISEASE
     Dosage: 1.5 TABS
  4. CLONAZEPAM [Concomitant]
     Indication: ANXIETY
  5. LEVETIRACETAM [Concomitant]
     Indication: CONVULSION
  6. VENLAFAXINE HCL EXTENDED-RELEASE [Concomitant]
     Indication: ANXIETY
  7. TAMSULOSIN HCL [Concomitant]
     Indication: PROSTATIC DISORDER
  8. HUMIRA [Suspect]
     Indication: CROHN'S DISEASE
     Dates: start: 20101210
  9. SEROQUEL [Concomitant]
     Indication: ANXIETY

REACTIONS (4)
  - CROHN'S DISEASE [None]
  - GASTRIC DISORDER [None]
  - ABDOMINAL PAIN UPPER [None]
  - DIARRHOEA [None]
